FAERS Safety Report 4724719-8 (Version None)
Quarter: 2005Q3

REPORT INFORMATION
  Report Type: 
  Country: None (occurrence: None)
  Receive Date: 20050720
  Receipt Date: 20050720
  Transmission Date: 20060218
  Serious: Yes (Death)
  Sender: FDA-Public Use
  Company Number: None

PATIENT
  Age: 43 Year
  Sex: Male
  Weight: 101.1521 kg

DRUGS (1)
  1. FENTANYL [Suspect]
     Indication: BACK PAIN
     Dosage: TRANSDERMAL
     Route: 062
     Dates: start: 20030629, end: 20030630

REACTIONS (1)
  - ACCIDENTAL DEATH [None]
